FAERS Safety Report 16490401 (Version 1)
Quarter: 2019Q2

REPORT INFORMATION
  Report Type: Spontaneous
  Country: US (occurrence: US)
  Receive Date: 20190628
  Receipt Date: 20190628
  Transmission Date: 20190711
  Serious: No
  Sender: FDA-Public Use
  Company Number: US-GALDERMA-US19016350

PATIENT
  Age: 27 Year
  Sex: Male

DRUGS (1)
  1. PROACTIV MD ADAPALENE ACNE TREATMENT [Suspect]
     Active Substance: ADAPALENE
     Indication: RASH PAPULAR
     Dosage: 0.1%
     Route: 061
     Dates: start: 201802

REACTIONS (5)
  - Drug ineffective for unapproved indication [Recovered/Resolved]
  - Inappropriate schedule of product administration [Recovered/Resolved]
  - Drug ineffective [Unknown]
  - Product use in unapproved indication [Recovered/Resolved]
  - Overdose [Recovered/Resolved]
